FAERS Safety Report 17926551 (Version 1)
Quarter: 2020Q2

REPORT INFORMATION
  Report Type: Spontaneous
  Country: CA (occurrence: CA)
  Receive Date: 20200623
  Receipt Date: 20200623
  Transmission Date: 20200714
  Serious: Yes (Hospitalization)
  Sender: FDA-Public Use
  Company Number: CA-ROCHE-2627202

PATIENT
  Age: 51 Year
  Sex: Male

DRUGS (26)
  1. ASA [Concomitant]
     Active Substance: ASPIRIN
  2. NAPROXEN. [Concomitant]
     Active Substance: NAPROXEN
  3. INSULIN [Concomitant]
     Active Substance: INSULIN NOS
  4. LORAZEPAM. [Concomitant]
     Active Substance: LORAZEPAM
  5. MOMETASONE FUROATE. [Concomitant]
     Active Substance: MOMETASONE FUROATE
  6. PERINDOPRIL [Concomitant]
     Active Substance: PERINDOPRIL
  7. INDAPAMIDE. [Concomitant]
     Active Substance: INDAPAMIDE
  8. LATANOPROST. [Concomitant]
     Active Substance: LATANOPROST
  9. ALLOPURINOL. [Concomitant]
     Active Substance: ALLOPURINOL
  10. CODEINE [Concomitant]
     Active Substance: CODEINE
  11. FUROSEMIDE. [Concomitant]
     Active Substance: FUROSEMIDE
  12. PREGABALIN. [Concomitant]
     Active Substance: PREGABALIN
  13. MORPHINE [Concomitant]
     Active Substance: MORPHINE
  14. METFORMIN [Concomitant]
     Active Substance: METFORMIN HYDROCHLORIDE
     Route: 065
  15. SALBUTAMOL [Concomitant]
     Active Substance: ALBUTEROL
  16. AVASTIN [Suspect]
     Active Substance: BEVACIZUMAB
     Indication: GLAUCOMA
     Route: 042
  17. NABILONE [Concomitant]
     Active Substance: NABILONE
  18. AMLODIPINE [Concomitant]
     Active Substance: AMLODIPINE BESYLATE
  19. ACETAZOLAMIDE. [Concomitant]
     Active Substance: ACETAZOLAMIDE
  20. FLUVASTATIN [Concomitant]
     Active Substance: FLUVASTATIN SODIUM
  21. BRIMONIDINE [Concomitant]
     Active Substance: BRIMONIDINE TARTRATE
  22. TIMOLOL. [Concomitant]
     Active Substance: TIMOLOL
  23. ZOPICLONE [Concomitant]
     Active Substance: ZOPICLONE
  24. GLICLAZIDE [Concomitant]
     Active Substance: GLICLAZIDE
  25. OMEPRAZOLE. [Concomitant]
     Active Substance: OMEPRAZOLE
     Route: 031
  26. SOLIFENACIN [Concomitant]
     Active Substance: SOLIFENACIN

REACTIONS (2)
  - Myocardial infarction [Unknown]
  - Colitis ischaemic [Unknown]
